FAERS Safety Report 5328758-8 (Version None)
Quarter: 2007Q2

REPORT INFORMATION
  Report Type: 
  Country: None (occurrence: None)
  Receive Date: 20070516
  Receipt Date: 20070516
  Transmission Date: 20071010
  Serious: Yes (Hospitalization)
  Sender: FDA-Public Use
  Company Number: None

PATIENT
  Age: 72 Year
  Sex: Female
  Weight: 68 kg

DRUGS (14)
  1. MERCAPTOPURINE [Suspect]
     Indication: POLYMYOSITIS
     Dosage: PO
     Route: 048
  2. LOPRESSOR [Concomitant]
  3. NOVOLIN R [Concomitant]
  4. CYMBALTA [Concomitant]
  5. ASPIRIN [Concomitant]
  6. CLONIDINE [Concomitant]
  7. PLAVIX [Concomitant]
  8. DIGOXIN [Concomitant]
  9. FOLIC ACID [Concomitant]
  10. LASIX [Concomitant]
  11. NORVASC [Concomitant]
  12. POTASSIUM CHLORIDE [Concomitant]
  13. PREDNISONE TAB [Concomitant]
  14. LANTUS [Concomitant]

REACTIONS (2)
  - HAEMOGLOBIN DECREASED [None]
  - WHITE BLOOD CELL COUNT DECREASED [None]
